FAERS Safety Report 8601635-2 (Version None)
Quarter: 2012Q3

REPORT INFORMATION
  Report Type: 
  Country: None (occurrence: None)
  Receive Date: 20120817
  Receipt Date: 20120104
  Transmission Date: 20120928
  Serious: Yes (Hospitalization)
  Sender: FDA-Public Use
  Company Number: US-BRISTOL-MYERS SQUIBB COMPANY-16329856

PATIENT
  Sex: Female

DRUGS (1)
  1. SPRYCEL [Suspect]
     Dates: end: 20110701

REACTIONS (1)
  - PULMONARY OEDEMA [None]
